FAERS Safety Report 7026250-6 (Version None)
Quarter: 2010Q4

REPORT INFORMATION
  Report Type: 
  Country: None (occurrence: None)
  Receive Date: 20101004
  Receipt Date: 20100929
  Transmission Date: 20110411
  Serious: Yes (Life-Threatening)
  Sender: FDA-Public Use
  Company Number: AT-JNJFOC-20100908419

PATIENT
  Age: 27 Year
  Sex: Female

DRUGS (48)
  1. RISPERDAL CONSTA [Suspect]
     Indication: SCHIZOPHRENIA
     Route: 030
  2. RISPERDAL CONSTA [Suspect]
     Route: 030
  3. RISPERDAL CONSTA [Suspect]
     Route: 030
  4. RISPERDAL CONSTA [Suspect]
     Route: 030
  5. RISPERDAL CONSTA [Suspect]
     Route: 030
  6. RISPERDAL CONSTA [Suspect]
     Route: 030
  7. RISPERDAL CONSTA [Suspect]
     Route: 030
  8. RISPERDAL CONSTA [Suspect]
     Route: 030
  9. RISPERDAL CONSTA [Suspect]
     Route: 030
  10. RISPERDAL CONSTA [Suspect]
     Route: 030
  11. RISPERDAL [Suspect]
     Indication: SCHIZOPHRENIA
     Route: 065
  12. RISPERDAL [Suspect]
     Route: 065
  13. RISPERDAL [Suspect]
     Route: 065
  14. HALDOL [Suspect]
     Indication: PRODUCT USED FOR UNKNOWN INDICATION
     Route: 065
  15. HALDOL [Suspect]
     Route: 065
  16. HALDOL [Suspect]
     Route: 065
  17. HALDOL [Suspect]
     Route: 065
  18. HALDOL [Suspect]
     Route: 065
  19. HALDOL [Suspect]
     Route: 065
  20. DEPAKENE [Suspect]
     Indication: PRODUCT USED FOR UNKNOWN INDICATION
     Route: 065
  21. SEROQUEL [Suspect]
     Indication: PRODUCT USED FOR UNKNOWN INDICATION
     Route: 065
  22. SEROQUEL [Suspect]
     Route: 065
  23. SEROQUEL [Suspect]
     Route: 065
  24. SEROQUEL XR [Suspect]
     Indication: PRODUCT USED FOR UNKNOWN INDICATION
     Route: 065
  25. SEROQUEL XR [Suspect]
     Route: 065
  26. SEROQUEL XR [Suspect]
     Route: 065
  27. SEROQUEL XR [Suspect]
     Route: 065
  28. SEROQUEL XR [Suspect]
     Route: 065
  29. SEROQUEL XR [Suspect]
     Route: 065
  30. SEROQUEL XR [Suspect]
     Route: 065
  31. SEROQUEL XR [Suspect]
     Route: 065
  32. KEPPRA [Suspect]
     Indication: PRODUCT USED FOR UNKNOWN INDICATION
     Route: 065
  33. KEPPRA [Suspect]
     Route: 065
  34. KEPPRA [Suspect]
     Route: 065
  35. KEPPRA [Suspect]
     Route: 065
  36. DOMINAL [Suspect]
     Indication: PRODUCT USED FOR UNKNOWN INDICATION
     Route: 065
  37. RIVOTRIL [Suspect]
     Indication: PRODUCT USED FOR UNKNOWN INDICATION
     Route: 065
  38. RIVOTRIL [Suspect]
     Route: 065
  39. RIVOTRIL [Suspect]
     Route: 065
  40. RIVOTRIL [Suspect]
     Route: 065
  41. RIVOTRIL [Suspect]
     Route: 065
  42. AKINETON [Suspect]
     Indication: PRODUCT USED FOR UNKNOWN INDICATION
     Route: 042
  43. AKINETON [Suspect]
     Route: 042
  44. AKINETON [Suspect]
     Route: 042
  45. AKINETON [Suspect]
     Route: 042
  46. THYREX [Suspect]
     Indication: PRODUCT USED FOR UNKNOWN INDICATION
     Route: 065
  47. PANTOLOC [Concomitant]
     Indication: PRODUCT USED FOR UNKNOWN INDICATION
     Route: 065
  48. LOVENOX [Concomitant]
     Indication: PRODUCT USED FOR UNKNOWN INDICATION
     Route: 065

REACTIONS (10)
  - AGITATION [None]
  - DYSKINESIA [None]
  - HALLUCINATION, AUDITORY [None]
  - INAPPROPRIATE SCHEDULE OF DRUG ADMINISTRATION [None]
  - INTENTIONAL SELF-INJURY [None]
  - OCULOGYRIC CRISIS [None]
  - OVERDOSE [None]
  - PARKINSONISM [None]
  - SUICIDE ATTEMPT [None]
  - TENSION [None]
